FAERS Safety Report 9571258 (Version 6)
Quarter: 2014Q1

REPORT INFORMATION
  Report Type: Report from Study
  Country: FR (occurrence: FR)
  Receive Date: 20131001
  Receipt Date: 20140218
  Transmission Date: 20141002
  Serious: No
  Sender: FDA-Public Use
  Company Number: FR-CELGENEUS-056-C4047-13081657

PATIENT
  Age: 88 Year
  Sex: Female
  Weight: 59 kg

DRUGS (9)
  1. CC-4047 [Suspect]
     Indication: PLASMA CELL MYELOMA
     Dosage: 4 MILLIGRAM
     Route: 048
     Dates: start: 20130630, end: 20130810
  2. CC-4047 [Suspect]
     Dosage: 4 MILLIGRAM
     Route: 048
     Dates: start: 20120730, end: 20130531
  3. DEXAMETHASONE [Concomitant]
     Indication: PLASMA CELL MYELOMA
     Dosage: 20 MILLIGRAM
     Route: 065
  4. DEXAMETHASONE [Concomitant]
     Route: 065
     Dates: start: 201102, end: 201111
  5. DEXAMETHASONE [Concomitant]
     Route: 065
     Dates: start: 201001, end: 201101
  6. DEXAMETHASONE [Concomitant]
     Route: 065
     Dates: start: 201201, end: 201206
  7. DEXAMETHASONE [Concomitant]
     Route: 065
     Dates: start: 20120620, end: 20130810
  8. LOVENOX [Concomitant]
     Indication: PRODUCT USED FOR UNKNOWN INDICATION
     Dosage: .4 MILLIGRAM
     Route: 065
  9. BINOCRIT [Concomitant]
     Indication: ANAEMIA
     Route: 065

REACTIONS (1)
  - Plasma cell myeloma [Recovered/Resolved]
